FAERS Safety Report 10052900 (Version 3)
Quarter: 2014Q2

REPORT INFORMATION
  Report Type: Spontaneous
  Country: US (occurrence: US)
  Receive Date: 20140402
  Receipt Date: 20140620
  Transmission Date: 20141212
  Serious: No
  Sender: FDA-Public Use
  Company Number: US-009507513-1403USA011475

PATIENT
  Age: 76 Year
  Sex: Female

DRUGS (4)
  1. ASMANEX TWISTHALER [Suspect]
     Indication: BRONCHITIS CHRONIC
     Dosage: 1 INHALATION ONCE DAILY
     Route: 055
     Dates: start: 20140314
  2. XARELTO [Concomitant]
  3. PRAVASTATIN SODIUM [Concomitant]
  4. COZAAR [Concomitant]

REACTIONS (6)
  - Syncope [Unknown]
  - Dyspnoea [Not Recovered/Not Resolved]
  - Drug dose omission [Unknown]
  - Accidental exposure to product [Unknown]
  - Product quality issue [Unknown]
  - Drug administration error [Unknown]
